FAERS Safety Report 6687134-6 (Version None)
Quarter: 2010Q2

REPORT INFORMATION
  Report Type: 
  Country: None (occurrence: None)
  Receive Date: 20100419
  Receipt Date: 20100412
  Transmission Date: 20101027
  Serious: No
  Sender: FDA-Public Use
  Company Number: BR-ROCHE-637396

PATIENT

DRUGS (1)
  1. TAMIFLU [Suspect]
     Route: 064
     Dates: start: 20090601, end: 20090101

REACTIONS (2)
  - NO ADVERSE EVENT [None]
  - NORMAL NEWBORN [None]
